FAERS Safety Report 19764369 (Version 1)
Quarter: 2021Q3

REPORT INFORMATION
  Report Type: Spontaneous
  Country: US (occurrence: US)
  Receive Date: 20210830
  Receipt Date: 20210830
  Transmission Date: 20211014
  Serious: No
  Sender: FDA-Public Use
  Company Number: US-ALNYLAM PHARMACEUTICALS, INC.-ALN-2021-002087

PATIENT

DRUGS (1)
  1. ONPATTRO [Suspect]
     Active Substance: PATISIRAN SODIUM
     Indication: AMYLOIDOSIS SENILE
     Dosage: UNK
     Route: 065
     Dates: start: 201906

REACTIONS (4)
  - Orthosis user [Unknown]
  - Fall [Unknown]
  - Therapy cessation [Unknown]
  - Condition aggravated [Unknown]
